FAERS Safety Report 23161680 (Version 1)
Quarter: 2023Q4

REPORT INFORMATION
  Report Type: Spontaneous
  Country: HU (occurrence: HU)
  Receive Date: 20231108
  Receipt Date: 20231108
  Transmission Date: 20240110
  Serious: Yes (Death, Hospitalization)
  Sender: FDA-Public Use
  Company Number: HU-BoehringerIngelheim-2023-BI-271655

PATIENT
  Age: 72 Year
  Sex: Male

DRUGS (2)
  1. JARDIANCE [Suspect]
     Active Substance: EMPAGLIFLOZIN
     Indication: Type 2 diabetes mellitus
     Dates: start: 202211
  2. INSULIN NOS [Concomitant]
     Active Substance: INSULIN NOS
     Indication: Type 2 diabetes mellitus

REACTIONS (5)
  - Urosepsis [Fatal]
  - Urinary tract infection [Not Recovered/Not Resolved]
  - Multiple organ dysfunction syndrome [Unknown]
  - Blood pressure decreased [Unknown]
  - Leg amputation [Unknown]

NARRATIVE: CASE EVENT DATE: 20230101
